FAERS Safety Report 16751270 (Version 1)
Quarter: 2019Q3

REPORT INFORMATION
  Report Type: Spontaneous
  Country: US (occurrence: US)
  Receive Date: 20190828
  Receipt Date: 20190828
  Transmission Date: 20191005
  Serious: No
  Sender: FDA-Public Use
  Company Number: US-PERRIGO-19US009299

PATIENT
  Age: 67 Year
  Sex: Female
  Weight: 79.37 kg

DRUGS (2)
  1. ESOMEPRAZOLE MAGNESIUM. [Suspect]
     Active Substance: ESOMEPRAZOLE MAGNESIUM
     Indication: DYSPEPSIA
     Dosage: 20 MG, QD
     Route: 048
     Dates: start: 20190701, end: 20190714
  2. ANTIHYPERTENSIVES [Concomitant]
     Active Substance: UNSPECIFIED INGREDIENT
     Indication: HYPERTENSION
     Dosage: UNK
     Route: 065

REACTIONS (3)
  - Diarrhoea [Recovered/Resolved]
  - Drug ineffective [Unknown]
  - Flatulence [Not Recovered/Not Resolved]

NARRATIVE: CASE EVENT DATE: 201907
